FAERS Safety Report 20013160 (Version 4)
Quarter: 2021Q4

REPORT INFORMATION
  Report Type: Spontaneous
  Country: JP (occurrence: JP)
  Receive Date: 20211029
  Receipt Date: 20211118
  Transmission Date: 20220303
  Serious: Yes (Life-Threatening, Hospitalization, Other)
  Sender: FDA-Public Use
  Company Number: JP-MSD-2110JPN002520J

PATIENT
  Age: 33 Year
  Sex: Male

DRUGS (5)
  1. BELSOMRA [Suspect]
     Active Substance: SUVOREXANT
     Indication: Insomnia
     Dosage: 20 MILLIGRAM, QD
     Route: 048
     Dates: end: 202103
  2. BELSOMRA [Suspect]
     Active Substance: SUVOREXANT
     Dosage: 1120 MILLIGRAM, QD
     Route: 048
     Dates: start: 202103
  3. ALPRAZOLAM [Concomitant]
     Active Substance: ALPRAZOLAM
     Dosage: 61.6 MILLIGRAM
     Route: 048
  4. CHLORPROMAZINE HYDROCHLORIDE [Concomitant]
     Active Substance: CHLORPROMAZINE HYDROCHLORIDE
     Dosage: 3900 MILLIGRAM
     Route: 048
  5. ESCITALOPRAM OXALATE [Concomitant]
     Active Substance: ESCITALOPRAM OXALATE
     Dosage: 560 MILLIGRAM
     Route: 048

REACTIONS (7)
  - Neuroleptic malignant syndrome [Recovering/Resolving]
  - Liver disorder [Recovered/Resolved]
  - Acute kidney injury [Recovered/Resolved]
  - Seizure [Unknown]
  - Multiple organ dysfunction syndrome [Unknown]
  - Metabolic encephalopathy [Unknown]
  - Overdose [Unknown]

NARRATIVE: CASE EVENT DATE: 20210301
